FAERS Safety Report 16663110 (Version 1)
Quarter: 2019Q3

REPORT INFORMATION
  Report Type: Report from Study
  Country: US (occurrence: US)
  Receive Date: 20190802
  Receipt Date: 20190802
  Transmission Date: 20191004
  Serious: No
  Sender: FDA-Public Use
  Company Number: US-EXELIXIS-CABO-19021069

PATIENT
  Sex: Female

DRUGS (17)
  1. ZOFRAN [Concomitant]
     Active Substance: ONDANSETRON HYDROCHLORIDE
  2. PEPCID [Concomitant]
     Active Substance: FAMOTIDINE
  3. PREDNISONE. [Concomitant]
     Active Substance: PREDNISONE
  4. LORAZEPAM. [Concomitant]
     Active Substance: LORAZEPAM
  5. ATORVASTATIN CALCIUM. [Concomitant]
     Active Substance: ATORVASTATIN CALCIUM
  6. CABOMETYX [Suspect]
     Active Substance: CABOZANTINIB S-MALATE
     Indication: RENAL CANCER
     Dosage: 40 MG, QD
     Route: 048
  7. CELEXA [Concomitant]
     Active Substance: CITALOPRAM HYDROBROMIDE
  8. CHLORTHALIDONE. [Concomitant]
     Active Substance: CHLORTHALIDONE
  9. OLANZAPINE. [Concomitant]
     Active Substance: OLANZAPINE
  10. NEUROTIN [Concomitant]
     Active Substance: GABAPENTIN
  11. AMOUR [Concomitant]
  12. PRILOSEC [Concomitant]
     Active Substance: OMEPRAZOLE MAGNESIUM
  13. ONDANSETRON HCL [Concomitant]
     Active Substance: ONDANSETRON HYDROCHLORIDE
  14. ESTRADIOL. [Concomitant]
     Active Substance: ESTRADIOL
  15. CALCIUM CARBONATE. [Concomitant]
     Active Substance: CALCIUM CARBONATE
  16. DIPHENOXYLATE/ATROPINE [Concomitant]
     Active Substance: ATROPINE\DIPHENOXYLATE
  17. MAGNESIUM OXIDE. [Concomitant]
     Active Substance: MAGNESIUM OXIDE

REACTIONS (4)
  - Fatigue [Unknown]
  - Lactose intolerance [Unknown]
  - Diarrhoea [Unknown]
  - Vomiting [Unknown]
